FAERS Safety Report 8267931-6 (Version None)
Quarter: 2012Q2

REPORT INFORMATION
  Report Type: 
  Country: None (occurrence: None)
  Receive Date: 20120409
  Receipt Date: 20120403
  Transmission Date: 20120825
  Serious: Yes (Other)
  Sender: FDA-Public Use
  Company Number: PHHY2011AR098101

PATIENT
  Sex: Female

DRUGS (1)
  1. DIOVAN [Suspect]
     Indication: HYPERTENSION
     Dosage: 1 TABLET (320 MG), DAILY
     Dates: start: 20060101

REACTIONS (16)
  - CHONDROPATHY [None]
  - COUGH [None]
  - BLOOD PRESSURE INCREASED [None]
  - MALAISE [None]
  - BONE DISORDER [None]
  - DECREASED APPETITE [None]
  - DYSPNOEA [None]
  - FALL [None]
  - VISUAL IMPAIRMENT [None]
  - TINNITUS [None]
  - JOINT INJURY [None]
  - MEMORY IMPAIRMENT [None]
  - HEARING IMPAIRED [None]
  - HEADACHE [None]
  - ARTHRITIS [None]
  - MENTAL DISORDER [None]
